FAERS Safety Report 8060250-2 (Version None)
Quarter: 2012Q1

REPORT INFORMATION
  Report Type: 
  Country: None (occurrence: None)
  Receive Date: 20120120
  Receipt Date: 20111026
  Transmission Date: 20120608
  Serious: No
  Sender: FDA-Public Use
  Company Number: US-NOVEN-11US003499

PATIENT
  Sex: Male

DRUGS (2)
  1. PERCOCET [Concomitant]
     Indication: BACK PAIN
  2. FENTANYL [Suspect]
     Indication: BACK PAIN
     Dosage: 50 UG/HR Q72HRS
     Route: 062
     Dates: start: 20111001

REACTIONS (3)
  - PRODUCT QUALITY ISSUE [None]
  - INADEQUATE ANALGESIA [None]
  - DRUG ADMINISTRATION ERROR [None]
